FAERS Safety Report 9605312 (Version 3)
Quarter: 2013Q4

REPORT INFORMATION
  Report Type: Report from Study
  Country: US (occurrence: US)
  Receive Date: 20131008
  Receipt Date: 20131030
  Transmission Date: 20140711
  Serious: Yes (Other)
  Sender: FDA-Public Use
  Company Number: US-US-EMD SERONO, INC.-7136001

PATIENT
  Age: 59 Year
  Sex: Female

DRUGS (3)
  1. REBIF [Suspect]
     Indication: PRODUCT USED FOR UNKNOWN INDICATION
     Route: 058
  2. REBIF [Suspect]
     Route: 058
     Dates: start: 20120516, end: 20130826
  3. REBIF [Suspect]
     Dates: start: 201310

REACTIONS (7)
  - Injection site scar [Not Recovered/Not Resolved]
  - Injection site atrophy [Unknown]
  - Muscular weakness [Unknown]
  - Joint swelling [Unknown]
  - Injection site mass [Unknown]
  - Injection site erythema [Unknown]
  - Injection site pain [Unknown]
